FAERS Safety Report 4866037-3 (Version None)
Quarter: 2005Q4

REPORT INFORMATION
  Report Type: 
  Country: None (occurrence: None)
  Receive Date: 20051221
  Receipt Date: 20051212
  Transmission Date: 20060501
  Serious: Yes (Hospitalization)
  Sender: FDA-Public Use
  Company Number: 216338

PATIENT
  Age: 63 Year
  Sex: Male
  Weight: 81 kg

DRUGS (15)
  1. RITUXIMAB(RITUXIMAB) CONC FOR SOLUTION FOR INFUSION [Suspect]
     Indication: CHRONIC LYMPHOCYTIC LEUKAEMIA
     Dosage: 500 MG/M2, Q4W, INTRAVENOUS
     Route: 042
     Dates: start: 20041005, end: 20050316
  2. FLUDARABINE PHOSPHATE [Suspect]
     Indication: CHRONIC LYMPHOCYTIC LEUKAEMIA
     Dosage: 25 MG/M2, Q4W, INTRAVENOUS
     Route: 042
     Dates: start: 20041006, end: 20050318
  3. CYCLOPHOSPHAMIDE [Suspect]
     Indication: CHRONIC LYMPHOCYTIC LEUKAEMIA
     Dosage: 250 MG/M2, Q4W, INTRAVENOUS
     Route: 042
     Dates: start: 20041006, end: 20050318
  4. CALCIUM DOBESILATE (CALCIUM DOBESILATE) [Concomitant]
  5. ALPRAZOLAM [Concomitant]
  6. GLICLAZIDE (GLICLAZIDE) [Concomitant]
  7. METFORMIN HCL [Concomitant]
  8. PANTOPRAZOLE SODIUM [Concomitant]
  9. ALLOPURINOL [Concomitant]
  10. FOSINOPRIL (FOSINOPRIL SODIUM) [Concomitant]
  11. VINPOCETINE (VINPOCETINE) [Concomitant]
  12. FLUCONAZOLE [Concomitant]
  13. CIPROFLOXACIN [Concomitant]
  14. ACICLOVIR (ACYCLOVIR) [Concomitant]
  15. SOMATREM (SOMATREM) [Concomitant]

REACTIONS (1)
  - GRANULOCYTOPENIA [None]
